FAERS Safety Report 9134895 (Version 1)
Quarter: 2013Q1

REPORT INFORMATION
  Report Type: Spontaneous
  Country: US (occurrence: US)
  Receive Date: 20130304
  Receipt Date: 20130304
  Transmission Date: 20140127
  Serious: Yes (Other)
  Sender: FDA-Public Use
  Company Number: US-PFIZER INC-2013075064

PATIENT
  Age: 56 Year
  Sex: Female
  Weight: 68.03 kg

DRUGS (2)
  1. LYRICA [Suspect]
     Indication: NEUROPATHY PERIPHERAL
     Dosage: 150 MG IN THE MORNING AND 200 MG AT NIGHT
     Route: 048
     Dates: start: 2009
  2. INSULIN [Concomitant]
     Indication: DIABETES MELLITUS
     Dosage: 25 IU IN THE MORNING AND 15 IU AT NIGH)

REACTIONS (1)
  - Clavicle fracture [Unknown]
